FAERS Safety Report 20587288 (Version 2)
Quarter: 2022Q1

REPORT INFORMATION
  Report Type: Report from Study
  Country: BE (occurrence: BE)
  Receive Date: 20220314
  Receipt Date: 20220315
  Transmission Date: 20220423
  Serious: Yes (Hospitalization)
  Sender: FDA-Public Use
  Company Number: BE-ABBVIE-22K-013-4312656-00

PATIENT
  Sex: Male
  Weight: 105 kg

DRUGS (13)
  1. CARBIDOPA\LEVODOPA [Suspect]
     Active Substance: CARBIDOPA\LEVODOPA
     Indication: Parkinson^s disease
     Route: 050
     Dates: start: 20190117, end: 20210409
  2. CARBIDOPA\LEVODOPA [Suspect]
     Active Substance: CARBIDOPA\LEVODOPA
     Dosage: MD 5.5 ML, CD 4.4 ML/HR DURING 16 HOURS, ED 2.5 ML
     Route: 050
     Dates: start: 20210409, end: 20210602
  3. CARBIDOPA\LEVODOPA [Suspect]
     Active Substance: CARBIDOPA\LEVODOPA
     Dosage: MD 5.5 ML, CD 4.6 ML/HR DURING 16 HOURS, ED 2.5 ML
     Route: 050
     Dates: start: 20210602, end: 20210727
  4. CARBIDOPA\LEVODOPA [Suspect]
     Active Substance: CARBIDOPA\LEVODOPA
     Dosage: MD 6.0 ML, CD 4.8 ML/HR DURING 16 HOURS, ED 2.5 ML
     Route: 050
     Dates: start: 20210727, end: 20210929
  5. CARBIDOPA\LEVODOPA [Suspect]
     Active Substance: CARBIDOPA\LEVODOPA
     Dosage: MD 6.0 ML, CD 4.8 ML/HR DURING 16 HOURS, ED 3.0 ML
     Route: 050
     Dates: start: 20210929
  6. BEFACT [Concomitant]
     Indication: Product used for unknown indication
     Dosage: BEFACT FORTE?FREQUENCY AT 8.00 HOUR?DRAF NF
  7. TAMSULOSIN [Concomitant]
     Active Substance: TAMSULOSIN
     Indication: Product used for unknown indication
     Dosage: FREQUENCY AT 8.00 HOUR
  8. BENSERAZIDE\LEVODOPA [Concomitant]
     Active Substance: BENSERAZIDE\LEVODOPA
     Indication: Product used for unknown indication
     Dosage: FREQUENCY AT 20.00 HOUR
  9. BENSERAZIDE\LEVODOPA [Concomitant]
     Active Substance: BENSERAZIDE\LEVODOPA
     Route: 048
  10. BENSERAZIDE\LEVODOPA [Concomitant]
     Active Substance: BENSERAZIDE\LEVODOPA
     Indication: Product used for unknown indication
     Dosage: FREQUENCY 6.30-8.15-10.30-12.30-15.30-17.00 HOUR
  11. PANTOMED [Concomitant]
     Indication: Product used for unknown indication
     Dosage: FREQUENCY AT 8.00 HOUR
  12. OXYCONTIN [Concomitant]
     Active Substance: OXYCODONE HYDROCHLORIDE
     Indication: Product used for unknown indication
     Dosage: FREQUENCY AT 8.00 HOUR
  13. LASIX [Concomitant]
     Active Substance: FUROSEMIDE
     Indication: Product used for unknown indication
     Dosage: FREQUENCY AT 8.00 HOUR

REACTIONS (4)
  - Gastrointestinal perforation [Unknown]
  - Unintentional medical device removal [Recovered/Resolved]
  - Fistula [Unknown]
  - Stoma site discharge [Unknown]
